FAERS Safety Report 18341518 (Version 1)
Quarter: 2020Q4

REPORT INFORMATION
  Report Type: Spontaneous
  Country: ES (occurrence: ES)
  Receive Date: 20201004
  Receipt Date: 20201004
  Transmission Date: 20210113
  Serious: Yes (Other)
  Sender: FDA-Public Use
  Company Number: ES-TEVA-2020-ES-1834343

PATIENT
  Age: 56 Year
  Sex: Female

DRUGS (7)
  1. CIPROFLOXACINO TEVAGEN 500 MG COMPRIMIDOS RECUBIERTOS CON PELICULA EFG [Suspect]
     Active Substance: CIPROFLOXACIN HYDROCHLORIDE
     Indication: CYSTITIS
     Dosage: 500 MG
     Route: 048
     Dates: start: 20200601, end: 20200607
  2. ACFOL 5 MG COMPRIMIDOS , 28 COMPRIMIDOS [Concomitant]
     Dosage: 5 MG
     Route: 048
     Dates: start: 20151216
  3. ZOLISTAN 10 MG COMPRIMIDOS DE LIBERACION MODIFICADA , 20 COMPRIMIDOS [Concomitant]
     Dosage: 10 MG
     Route: 048
     Dates: start: 20141107
  4. METOTREXATO WYETH 2,5 MG COMPRIMIDOS, 24 COMPRIMIDOS [Concomitant]
     Indication: SJOGREN^S SYNDROME
     Dosage: 7.5 MG
     Route: 048
     Dates: start: 20160602
  5. HIDROFEROL 0,266 MG SOLUCION ORAL , 10 AMPOLLAS BEBIBLES DE 1,5 ML [Concomitant]
     Active Substance: CALCIFEDIOL
     Dosage: 10 DRINKABLE AMPOULES OF 1.5 ML, UNIT DOSE: 0.26 MCG
     Route: 048
     Dates: start: 20150305
  6. ENALAPRIL RATIOPHARM 5 MG COMPRIMIDOS EFG, 60 COMPRIMIDOS [Concomitant]
     Dosage: 5 MG
     Route: 048
     Dates: start: 20130305
  7. PREDNISONA CINFA 2,5 MG COMPRIMIDOS EFG, 30 COMPRIMIDOS [Concomitant]
     Dosage: 2.5 MG
     Route: 048
     Dates: start: 20160901

REACTIONS (1)
  - Tendon pain [Recovering/Resolving]

NARRATIVE: CASE EVENT DATE: 20200606
